FAERS Safety Report 24223983 (Version 1)
Quarter: 2024Q3

REPORT INFORMATION
  Report Type: Report from Study
  Country: US (occurrence: US)
  Receive Date: 20240819
  Receipt Date: 20240819
  Transmission Date: 20241017
  Serious: Yes (Hospitalization)
  Sender: BAYER
  Company Number: US-BAYER-2024A108916

PATIENT
  Age: 62 Year
  Sex: Male

DRUGS (4)
  1. NUBEQA [Suspect]
     Active Substance: DAROLUTAMIDE
     Indication: Prostate cancer
     Dosage: 600 MG, BID  (TAKE WHOLE WITH WATER AND FOOD)
     Route: 048
     Dates: end: 20230904
  2. NUBEQA [Suspect]
     Active Substance: DAROLUTAMIDE
     Indication: Prostate cancer
     Dosage: 600 MG, BID  (TAKE WHOLE WITH WATER AND FOOD)
     Route: 048
     Dates: start: 20230908
  3. NUBEQA [Suspect]
     Active Substance: DAROLUTAMIDE
     Indication: Prostate cancer
     Dosage: 600 MG, BID  (TAKE WHOLE WITH WATER AND FOOD)
     Route: 048
  4. NUBEQA [Suspect]
     Active Substance: DAROLUTAMIDE
     Indication: Prostate cancer
     Dosage: 600 MG, BID  (TAKE WHOLE WITH WATER AND FOOD)
     Route: 048

REACTIONS (7)
  - Back pain [Unknown]
  - Arthralgia [Unknown]
  - Pain in extremity [Unknown]
  - Nausea [Unknown]
  - Dry throat [None]
  - Blood pressure increased [None]
  - Peripheral swelling [None]

NARRATIVE: CASE EVENT DATE: 20240725
